FAERS Safety Report 10477873 (Version 1)
Quarter: 2014Q3

REPORT INFORMATION
  Report Type: Spontaneous
  Country: PL (occurrence: PL)
  Receive Date: 20140926
  Receipt Date: 20140926
  Transmission Date: 20150326
  Serious: Yes (Hospitalization)
  Sender: FDA-Public Use
  Company Number: PL-SA-2014SA128599

PATIENT
  Age: 57 Year
  Sex: Female
  Weight: 68 kg

DRUGS (8)
  1. SORBIFER DURULES [Concomitant]
     Indication: ANAEMIA PROPHYLAXIS
     Dates: start: 1999, end: 20110715
  2. LANZUL [Concomitant]
     Active Substance: LANSOPRAZOLE
     Indication: GASTRITIS PROPHYLAXIS
     Route: 048
     Dates: start: 2009
  3. METYPRED [Concomitant]
     Active Substance: METHYLPREDNISOLONE
     Indication: RHEUMATOID ARTHRITIS
     Route: 048
     Dates: start: 20100210
  4. VITAMIN B12 [Concomitant]
     Active Substance: CYANOCOBALAMIN
     Indication: PERNICIOUS ANAEMIA
     Dosage: MONTHLY INTRAMUSCULARLY FOR ADDISON^S ANAEMIA
     Route: 030
     Dates: start: 1999
  5. FOLIC ACID. [Concomitant]
     Active Substance: FOLIC ACID
     Indication: ANAEMIA PROPHYLAXIS
     Route: 048
     Dates: start: 20091213
  6. ARAVA [Suspect]
     Active Substance: LEFLUNOMIDE
     Indication: RHEUMATOID ARTHRITIS
     Route: 048
     Dates: start: 20110621, end: 20110715
  7. EUTHYROX [Concomitant]
     Active Substance: LEVOTHYROXINE SODIUM
     Indication: HYPOTHYROIDISM
     Dosage: 100 UG EVERY OTHER DAY AND 125 UG EVERY OTHER DAY
     Route: 048
     Dates: start: 2009
  8. MULTIVITAMINS [Concomitant]
     Active Substance: VITAMINS
     Indication: OSTEOPOROSIS PROPHYLAXIS
     Dosage: COMP TWICE DAILY ORALLY FOR OSTEOPOROSIS PROPHYLAXIS
     Route: 048
     Dates: start: 200802

REACTIONS (1)
  - Hepatic enzyme increased [Recovered/Resolved]

NARRATIVE: CASE EVENT DATE: 20110715
